FAERS Safety Report 6538538-3 (Version None)
Quarter: 2010Q1

REPORT INFORMATION
  Report Type: 
  Country: None (occurrence: None)
  Receive Date: 20100113
  Receipt Date: 20100113
  Transmission Date: 20100710
  Serious: Yes (Hospitalization)
  Sender: FDA-Public Use
  Company Number: None

PATIENT
  Age: 57 Year
  Sex: Male
  Weight: 88.5 kg

DRUGS (2)
  1. WARFARIN SODIUM [Suspect]
     Indication: ATRIAL FIBRILLATION
     Dosage: 1.92 MG EVERY DAY PO
     Route: 048
     Dates: start: 20091029
  2. PREDNISONE [Suspect]
     Indication: RHEUMATOID ARTHRITIS
     Dosage: 20 MG BID PO
     Route: 048

REACTIONS (7)
  - COAGULOPATHY [None]
  - ERYTHEMA [None]
  - GASTRIC HAEMORRHAGE [None]
  - HAEMATURIA [None]
  - INTERNATIONAL NORMALISED RATIO INCREASED [None]
  - PROCEDURAL SITE REACTION [None]
  - RECTAL HAEMORRHAGE [None]
